FAERS Safety Report 22524491 (Version 1)
Quarter: 2023Q2

REPORT INFORMATION
  Report Type: Spontaneous
  Country: US (occurrence: US)
  Receive Date: 20230606
  Receipt Date: 20230606
  Transmission Date: 20230722
  Serious: No
  Sender: FDA-Public Use
  Company Number: US-FreseniusKabi-FK202307803

PATIENT
  Age: 37 Year
  Sex: Female
  Weight: 46.3 kg

DRUGS (2)
  1. CEFOTETAN [Suspect]
     Active Substance: CEFOTETAN DISODIUM
     Indication: Anti-infective therapy
     Route: 042
     Dates: start: 20230519, end: 20230519
  2. CEFOTETAN [Suspect]
     Active Substance: CEFOTETAN DISODIUM
     Dosage: ONCE, TOTAL DOSE OF 2G
     Dates: start: 20230519, end: 20230519

REACTIONS (1)
  - Urticaria [Recovered/Resolved]
